FAERS Safety Report 13780794 (Version 1)
Quarter: 2017Q3

REPORT INFORMATION
  Report Type: Spontaneous
  Country: US (occurrence: US)
  Receive Date: 20170721
  Receipt Date: 20170721
  Transmission Date: 20171127
  Serious: Yes (Death)
  Sender: FDA-Public Use
  Company Number: None

PATIENT
  Age: 58 Year
  Sex: Male

DRUGS (6)
  1. MORPHINE SULFAE ER [Concomitant]
  2. OXYCODONE [Concomitant]
     Active Substance: OXYCODONE
  3. ENOXAPARIN [Suspect]
     Active Substance: ENOXAPARIN
     Indication: NEOPLASM MALIGNANT
     Dosage: ?          OTHER DOSE:MG;OTHER FREQUENCY:INJECT;?
     Route: 058
  4. COMPAZINE [Concomitant]
     Active Substance: PROCHLORPERAZINE MALEATE
  5. PRILOSEC [Concomitant]
     Active Substance: OMEPRAZOLE MAGNESIUM
  6. SYMBICORT [Concomitant]
     Active Substance: BUDESONIDE\FORMOTEROL FUMARATE DIHYDRATE

REACTIONS (1)
  - Death [None]
